FAERS Safety Report 5196931-8 (Version None)
Quarter: 2007Q1

REPORT INFORMATION
  Report Type: 
  Country: None (occurrence: None)
  Receive Date: 20070103
  Receipt Date: 20061213
  Transmission Date: 20070707
  Serious: Yes (Life-Threatening)
  Sender: FDA-Public Use
  Company Number: NL-BAXTER-2006BH015057

PATIENT
  Age: 45 Year
  Sex: Female

DRUGS (3)
  1. EXTRANEAL [Suspect]
     Indication: PERITONEAL DIALYSIS
     Dosage: DOSE UNIT:UNKNOWN
     Route: 033
  2. INSULIN [Concomitant]
     Indication: DIABETES MELLITUS
     Dosage: DOSE UNIT:UNKNOWN
     Route: 065
  3. INSULIN GLARGINE [Concomitant]
     Indication: DIABETES MELLITUS
     Dosage: DOSE UNIT:UNKNOWN
     Route: 065

REACTIONS (9)
  - DEVICE INTERACTION [None]
  - DIZZINESS [None]
  - EYE DISORDER [None]
  - HEMIPARESIS [None]
  - HYPERHIDROSIS [None]
  - HYPOGLYCAEMIC COMA [None]
  - NAUSEA [None]
  - TORTICOLLIS [None]
  - VOMITING [None]
